FAERS Safety Report 19798563 (Version 1)
Quarter: 2021Q3

REPORT INFORMATION
  Report Type: Spontaneous
  Country: US (occurrence: US)
  Receive Date: 20210906
  Receipt Date: 20210906
  Transmission Date: 20211014
  Serious: No
  Sender: FDA-Public Use
  Company Number: US-JNJFOC-20210846227

PATIENT
  Age: 76 Year
  Sex: Female

DRUGS (1)
  1. ZYRTEC [Suspect]
     Active Substance: CETIRIZINE HYDROCHLORIDE
     Indication: URTICARIA
     Dosage: USING ONLY 1 TABLET?ONLY ONCE A DAY
     Route: 048
     Dates: start: 202107

REACTIONS (4)
  - Product use in unapproved indication [Unknown]
  - Chromaturia [Recovered/Resolved]
  - Urinary sediment present [Recovered/Resolved]
  - Off label use [Unknown]

NARRATIVE: CASE EVENT DATE: 202107
